FAERS Safety Report 25520560 (Version 2)
Quarter: 2025Q3

REPORT INFORMATION
  Report Type: Report from Study
  Country: US (occurrence: US)
  Receive Date: 20250704
  Receipt Date: 20250810
  Transmission Date: 20251020
  Serious: Yes (Other)
  Sender: ALEXION PHARMACEUTICALS
  Company Number: US-AstraZeneca-CH-00817140A

PATIENT
  Age: 82 Year
  Sex: Female
  Weight: 106.12 kg

DRUGS (17)
  1. DAPAGLIFLOZIN [Suspect]
     Active Substance: DAPAGLIFLOZIN
     Dosage: 10 MILLIGRAM, QD
     Dates: start: 20240823, end: 20250226
  2. PRILOSEC [Suspect]
     Active Substance: OMEPRAZOLE MAGNESIUM
     Dosage: 40 MILLIGRAM, QD
     Route: 065
  3. TYLENOL [Concomitant]
     Active Substance: ACETAMINOPHEN
     Dosage: 500 MILLIGRAM, QD
  4. ELIQUIS [Concomitant]
     Active Substance: APIXABAN
     Dosage: 2.5 MILLIGRAM, QD
  5. LIPITOR [Concomitant]
     Active Substance: ATORVASTATIN CALCIUM
     Dosage: 10 MILLIGRAM, QD
  6. COREG [Concomitant]
     Active Substance: CARVEDILOL
     Dosage: 25 MILLIGRAM, BID
     Route: 065
  7. ZYRTEC [Concomitant]
     Active Substance: CETIRIZINE HYDROCHLORIDE
     Dosage: 10 MILLIGRAM, QD
  8. VOLTAREN [Concomitant]
     Active Substance: DICLOFENAC SODIUM
  9. CYMBALTA [Concomitant]
     Active Substance: DULOXETINE HYDROCHLORIDE
     Dosage: 60 MILLIGRAM, QD
     Route: 065
  10. LASIX [Concomitant]
     Active Substance: FUROSEMIDE
     Dosage: 20 MILLIGRAM, QD
  11. ZOFRAN [Concomitant]
     Active Substance: ONDANSETRON HYDROCHLORIDE
     Dosage: 4 MILLIGRAM, Q6H
  12. ENTRESTO [Concomitant]
     Active Substance: SACUBITRIL\VALSARTAN
  13. MOUNJARO [Concomitant]
     Active Substance: TIRZEPATIDE
     Route: 065
  14. CIPRO [Concomitant]
     Active Substance: CIPROFLOXACIN HYDROCHLORIDE
     Dosage: 250 MILLIGRAM, QD
  15. LOTRISONE [Concomitant]
     Active Substance: BETAMETHASONE DIPROPIONATE\CLOTRIMAZOLE
  16. NEURONTIN [Concomitant]
     Active Substance: GABAPENTIN
     Dosage: 100 MILLIGRAM, BID
  17. MYCOSTATIN [Concomitant]
     Active Substance: NYSTATIN

REACTIONS (39)
  - Colon cancer [Unknown]
  - Chronic kidney disease [Unknown]
  - Endometrial cancer [Unknown]
  - Cardiac failure [Unknown]
  - Chronic respiratory failure [Unknown]
  - Dilated cardiomyopathy [Unknown]
  - Skin cancer [Unknown]
  - Diabetes mellitus [Unknown]
  - Discomfort [Recovered/Resolved]
  - Urinary tract infection [Recovered/Resolved]
  - Fungal infection [Recovered/Resolved]
  - Blood glucose increased [Unknown]
  - Blood creatinine increased [Unknown]
  - Glomerular filtration rate decreased [Unknown]
  - Carbon dioxide decreased [Unknown]
  - Blood alkaline phosphatase increased [Unknown]
  - Glycosylated haemoglobin increased [Unknown]
  - Asthenia [Unknown]
  - Fatigue [Unknown]
  - Pruritus [Unknown]
  - Pollakiuria [Unknown]
  - Chills [Unknown]
  - Pain in extremity [Unknown]
  - Pain in extremity [Unknown]
  - Peroneal nerve palsy [Unknown]
  - Back pain [Unknown]
  - Renal pain [Unknown]
  - Cystitis [Unknown]
  - Weight decreased [Unknown]
  - Arthralgia [Unknown]
  - Fall [Unknown]
  - Stoma complication [Unknown]
  - Stoma site haemorrhage [Unknown]
  - Bladder disorder [Unknown]
  - Depression [Unknown]
  - Contusion [Unknown]
  - Arteriosclerosis coronary artery [Unknown]
  - Type V hyperlipidaemia [Unknown]
  - Essential hypertension [Unknown]
